FAERS Safety Report 15468397 (Version 2)
Quarter: 2018Q4

REPORT INFORMATION
  Report Type: Spontaneous
  Country: BE (occurrence: BE)
  Receive Date: 20181005
  Receipt Date: 20181030
  Transmission Date: 20190204
  Serious: Yes (Other)
  Sender: FDA-Public Use
  Company Number: BE-BAYER-2018-179500

PATIENT
  Age: 34 Year
  Sex: Female

DRUGS (2)
  1. MIRENA [Suspect]
     Active Substance: LEVONORGESTREL
     Indication: CONTRACEPTION
     Dosage: 20 MCG/24HR, CONT
     Route: 015
     Dates: start: 201605, end: 20180918
  2. MIRENA [Suspect]
     Active Substance: LEVONORGESTREL
     Indication: POLYMENORRHAGIA

REACTIONS (28)
  - Tinnitus [Recovered/Resolved]
  - Dizziness [None]
  - Immunodeficiency [None]
  - Amenorrhoea [Recovered/Resolved]
  - Seborrhoea [Recovering/Resolving]
  - Abdominal pain lower [Recovered/Resolved]
  - Heart rate increased [Recovered/Resolved]
  - Fatigue [None]
  - Restlessness [Recovered/Resolved]
  - Abdominal distension [None]
  - Mood swings [None]
  - Aggression [Recovered/Resolved]
  - Abnormal withdrawal bleeding [Recovered/Resolved]
  - Genital haemorrhage [Recovered/Resolved]
  - Burnout syndrome [Recovering/Resolving]
  - Alopecia [Recovering/Resolving]
  - Libido decreased [Recovered/Resolved]
  - Nausea [None]
  - Dyspepsia [None]
  - Procedural pain [Recovered/Resolved]
  - Migraine [Recovered/Resolved]
  - Vision blurred [Recovered/Resolved]
  - Fatigue [None]
  - Irregular sleep wake rhythm disorder [Recovered/Resolved]
  - Nervousness [Recovered/Resolved]
  - Palpitations [Recovered/Resolved]
  - Weight increased [None]
  - Mood altered [Recovered/Resolved]

NARRATIVE: CASE EVENT DATE: 2016
